FAERS Safety Report 8836426 (Version 3)
Quarter: 2012Q4

REPORT INFORMATION
  Report Type: 
  Country: US (occurrence: US)
  Receive Date: 20121011
  Receipt Date: 20121025
  Transmission Date: 20130627
  Serious: No
  Sender: FDA-Public Use
  Company Number: US-ASTRAZENECA-2012SE74710

PATIENT
  Age: 56 Year
  Sex: Female

DRUGS (2)
  1. SYMBICORT PMDI [Suspect]
     Dosage: UNKNOWN
     Route: 055
  2. NEXIUM [Suspect]
     Route: 048

REACTIONS (5)
  - Cognitive disorder [Unknown]
  - Dementia [Unknown]
  - Adverse event [Unknown]
  - Lung disorder [Unknown]
  - Drug dose omission [Unknown]
